FAERS Safety Report 5521807-3 (Version None)
Quarter: 2007Q4

REPORT INFORMATION
  Report Type: 
  Country: None (occurrence: None)
  Receive Date: 20071120
  Receipt Date: 20061201
  Transmission Date: 20080405
  Serious: No
  Sender: FDA-Public Use
  Company Number: A0629923A

PATIENT
  Age: 85 Year
  Sex: Female

DRUGS (2)
  1. LANOXIN [Suspect]
     Indication: DRUG USE FOR UNKNOWN INDICATION
     Dosage: .25MCG PER DAY
     Route: 048
     Dates: start: 19850101
  2. UNKNOWN MEDICATION [Concomitant]

REACTIONS (1)
  - NAUSEA [None]
